FAERS Safety Report 24548421 (Version 1)
Quarter: 2024Q4

REPORT INFORMATION
  Report Type: Spontaneous
  Country: IN (occurrence: IN)
  Receive Date: 20241025
  Receipt Date: 20241025
  Transmission Date: 20250114
  Serious: Yes (Other)
  Sender: SANDOZ
  Company Number: IN-SANDOZ-SDZ2024IN055983

PATIENT
  Sex: Female

DRUGS (3)
  1. MYFORTIC [Suspect]
     Active Substance: MYCOPHENOLATE SODIUM
     Indication: Renal transplant
     Dosage: 360 MG TWICE A DAY
     Route: 048
  2. TACROLIMUS [Suspect]
     Active Substance: TACROLIMUS
     Indication: Renal transplant
     Dosage: 1 MG, BID (OTHER DOSAGE: 2MG)
     Route: 048
  3. TACROLIMUS [Suspect]
     Active Substance: TACROLIMUS
     Dosage: UNK, OTHER (2.5MG (M) + 2MG (N))
     Route: 048

REACTIONS (8)
  - Cataract operation [Unknown]
  - Procedural pain [Unknown]
  - Swelling face [Unknown]
  - Dyspnoea exertional [Unknown]
  - Peripheral swelling [Unknown]
  - Klebsiella urinary tract infection [Unknown]
  - Weight increased [Unknown]
  - Hypertension [Unknown]
